APPROVED DRUG PRODUCT: HYDROXYCHLOROQUINE SULFATE
Active Ingredient: HYDROXYCHLOROQUINE SULFATE
Strength: 200MG
Dosage Form/Route: TABLET;ORAL
Application: A040081 | Product #001 | TE Code: AB
Applicant: TEVA PHARMACEUTICALS USA
Approved: Sep 30, 1994 | RLD: No | RS: No | Type: RX